FAERS Safety Report 4864108-9 (Version None)
Quarter: 2005Q4

REPORT INFORMATION
  Report Type: 
  Country: None (occurrence: None)
  Receive Date: 20051222
  Receipt Date: 20051213
  Transmission Date: 20060501
  Serious: Yes (Other)
  Sender: FDA-Public Use
  Company Number: CA-GLAXOSMITHKLINE-A0586512A

PATIENT
  Age: 35 Year
  Sex: Male

DRUGS (2)
  1. DEXEDRINE [Suspect]
     Dosage: 5MG THREE TIMES PER DAY
     Route: 048
     Dates: start: 20051201
  2. ANTI-PSYCHOTIC MEDICATION [Concomitant]

REACTIONS (4)
  - ABNORMAL BEHAVIOUR [None]
  - AGGRESSION [None]
  - AGITATION [None]
  - PARADOXICAL DRUG REACTION [None]
